FAERS Safety Report 5296255-4 (Version None)
Quarter: 2007Q2

REPORT INFORMATION
  Report Type: 
  Country: None (occurrence: None)
  Receive Date: 20070413
  Receipt Date: 20070402
  Transmission Date: 20071010
  Serious: Yes (Other)
  Sender: FDA-Public Use
  Company Number: US-NOVOPROD-262456

PATIENT
  Age: 48 Year
  Sex: Male

DRUGS (3)
  1. NOVOLIN 70/30 [Suspect]
     Indication: INSULIN-REQUIRING TYPE II DIABETES MELLITUS
     Dosage: 60 IU, BID
     Route: 058
     Dates: start: 20040101, end: 20070328
  2. NOVOLIN 70/30 [Suspect]
     Dosage: 40 IU, BID
     Route: 058
     Dates: start: 20070401
  3. HUMALOG                            /01293501/ [Concomitant]
     Indication: INSULIN-REQUIRING TYPE II DIABETES MELLITUS
     Dosage: UNKNOWN
     Route: 058

REACTIONS (4)
  - BLOOD GLUCOSE INCREASED [None]
  - EYE PAIN [None]
  - HEADACHE [None]
  - VISION BLURRED [None]
